FAERS Safety Report 24799812 (Version 1)
Quarter: 2024Q4

REPORT INFORMATION
  Report Type: Spontaneous
  Country: US (occurrence: None)
  Receive Date: 20241231
  Receipt Date: 20241231
  Transmission Date: 20250115
  Serious: Yes (Other)
  Sender: Public
  Company Number: None

PATIENT
  Age: 62 Year
  Sex: Female

DRUGS (1)
  1. RASUVO [Suspect]
     Active Substance: METHOTREXATE SODIUM
     Indication: Rheumatoid arthritis
     Dosage: 10 MG : ONCE EVERY WEEK SUBCUTANEOUS ?
     Route: 058
     Dates: start: 20241212

REACTIONS (1)
  - Stomatitis [None]

NARRATIVE: CASE EVENT DATE: 20241231
